FAERS Safety Report 19568546 (Version 2)
Quarter: 2021Q3

REPORT INFORMATION
  Report Type: Report from Study
  Country: US (occurrence: US)
  Receive Date: 20210714
  Receipt Date: 20210914
  Transmission Date: 20211014
  Serious: Yes (Other)
  Sender: FDA-Public Use
  Company Number: US-SEATTLE GENETICS-2020SGN04196

PATIENT
  Sex: Female

DRUGS (3)
  1. TUCATINIB [Suspect]
     Active Substance: TUCATINIB
     Dosage: UNK
  2. TUCATINIB [Suspect]
     Active Substance: TUCATINIB
     Indication: PRODUCT USED FOR UNKNOWN INDICATION
     Dosage: 50 MG, UNK
  3. TUCATINIB [Suspect]
     Active Substance: TUCATINIB
     Dosage: 150 MG, UNK

REACTIONS (6)
  - Burning sensation [Unknown]
  - Ear infection [Unknown]
  - Disease progression [Unknown]
  - Erythema [Unknown]
  - Neoplasm malignant [Unknown]
  - Stomatitis [Unknown]
